FAERS Safety Report 18051252 (Version 2)
Quarter: 2020Q3

REPORT INFORMATION
  Report Type: Spontaneous
  Country: AT (occurrence: AT)
  Receive Date: 20200721
  Receipt Date: 20200724
  Transmission Date: 20201103
  Serious: Yes (Hospitalization, Other)
  Sender: FDA-Public Use
  Company Number: AT-SUN PHARMACEUTICAL INDUSTRIES LTD-2020RR-254176

PATIENT
  Age: 27 Year
  Sex: Female

DRUGS (7)
  1. VALPROIC ACID. [Suspect]
     Active Substance: VALPROIC ACID
     Indication: DEPRESSED MOOD
     Dosage: 1500 MILLIGRAM, QD
     Route: 065
  2. RISPERIDON [Interacting]
     Active Substance: RISPERIDONE
     Indication: FEAR
     Dosage: 4 MILLIGRAM, QD
     Route: 065
  3. SERTRALINE [Suspect]
     Active Substance: SERTRALINE HYDROCHLORIDE
     Indication: PRODUCT USED FOR UNKNOWN INDICATION
     Dosage: 250 MILLIGRAM, DAILY
     Route: 065
  4. RISPERIDON [Interacting]
     Active Substance: RISPERIDONE
     Dosage: 4 MILLIGRAM, QD
     Route: 065
  5. SERTRALINE [Suspect]
     Active Substance: SERTRALINE HYDROCHLORIDE
     Dosage: 100 MILLIGRAM, QD
     Route: 065
  6. VALPROIC ACID. [Suspect]
     Active Substance: VALPROIC ACID
     Dosage: 1500 MILLIGRAM, QD
     Route: 065
  7. PAROXETINE. [Interacting]
     Active Substance: PAROXETINE
     Indication: FEAR
     Dosage: 60 MILLIGRAM, QD
     Route: 065

REACTIONS (13)
  - Hypomania [Unknown]
  - Decreased activity [Unknown]
  - Amenorrhoea [Unknown]
  - Libido increased [Unknown]
  - Generalised anxiety disorder [Unknown]
  - Drug ineffective [Unknown]
  - Treatment noncompliance [Unknown]
  - Labelled drug-drug interaction medication error [Unknown]
  - Agitation [Unknown]
  - Hyperprolactinaemia [Unknown]
  - Drug level increased [Unknown]
  - Flat affect [Unknown]
  - Intellectual disability [Unknown]
